FAERS Safety Report 4700957-5 (Version None)
Quarter: 2005Q2

REPORT INFORMATION
  Report Type: 
  Country: None (occurrence: None)
  Receive Date: 20050624
  Receipt Date: 20050203
  Transmission Date: 20051028
  Serious: Yes (Other)
  Sender: FDA-Public Use
  Company Number: 2005000266

PATIENT
  Age: 83 Year
  Sex: Female
  Weight: 54.2 kg

DRUGS (1)
  1. ERLOTINIB HCL (TABLET) (ERLOTINIB HCL) [Suspect]
     Indication: NON-SMALL CELL LUNG CANCER
     Dosage: 150 MG QD ORAL
     Route: 048
     Dates: start: 20041117, end: 20041230

REACTIONS (13)
  - ATOPY [None]
  - BLEPHARITIS [None]
  - CATARACT NUCLEAR [None]
  - CHORIORETINAL SCAR [None]
  - CORNEAL DISORDER [None]
  - DRUG EFFECT DECREASED [None]
  - DRY SKIN [None]
  - EYELID DISORDER [None]
  - IRIS ADHESIONS [None]
  - PIGMENTATION DISORDER [None]
  - SKIN DYSTROPHY [None]
  - UVEITIS [None]
  - VITREOUS FLOATERS [None]
